FAERS Safety Report 5773260-2 (Version None)
Quarter: 2008Q2

REPORT INFORMATION
  Report Type: 
  Country: None (occurrence: None)
  Receive Date: 20080613
  Receipt Date: 20080613
  Transmission Date: 20081010
  Serious: Yes (Life-Threatening, Hospitalization)
  Sender: FDA-Public Use
  Company Number: None

PATIENT
  Sex: Female
  Weight: 117.028 kg

DRUGS (9)
  1. SIMCOR [Suspect]
     Indication: HIGH DENSITY LIPOPROTEIN DECREASED
     Dosage: ONE NIGHTLY PO
     Route: 048
     Dates: start: 20080518, end: 20080601
  2. SIMCOR [Suspect]
     Indication: LOW DENSITY LIPOPROTEIN INCREASED
     Dosage: ONE NIGHTLY PO
     Route: 048
     Dates: start: 20080518, end: 20080601
  3. LISINOPRIL [Concomitant]
  4. ASPIRIN [Concomitant]
  5. CELEXA [Concomitant]
  6. CLIMARA PRO PATCH [Concomitant]
  7. FEXOFENADINE [Concomitant]
  8. OMEPRAZOLE [Concomitant]
  9. SIMVASTATIN [Concomitant]

REACTIONS (3)
  - FLUSHING [None]
  - HYPERHIDROSIS [None]
  - STOMACH DISCOMFORT [None]
